FAERS Safety Report 10042299 (Version 10)
Quarter: 2015Q3

REPORT INFORMATION
  Report Type: Report from Study
  Country: US (occurrence: US)
  Receive Date: 20140327
  Receipt Date: 20150929
  Transmission Date: 20151125
  Serious: Yes (Hospitalization, Other)
  Sender: FDA-Public Use
  Company Number: US-SA-2013SA125352

PATIENT
  Age: 69 Year
  Sex: Male

DRUGS (6)
  1. TOVIAZ [Concomitant]
     Active Substance: FESOTERODINE FUMARATE
     Indication: URINARY INCONTINENCE
  2. LIDOCAINE. [Concomitant]
     Active Substance: LIDOCAINE
     Indication: BACK PAIN
     Dosage: PATCH
  3. AUBAGIO [Suspect]
     Active Substance: TERIFLUNOMIDE
     Indication: MULTIPLE SCLEROSIS
     Dosage: SINCE 19 MARCH
     Route: 048
     Dates: start: 20130319, end: 20140316
  4. AUBAGIO [Suspect]
     Active Substance: TERIFLUNOMIDE
     Indication: MULTIPLE SCLEROSIS
     Route: 048
  5. AMPYRA [Suspect]
     Active Substance: DALFAMPRIDINE
     Route: 065
  6. LIDOCAINE. [Concomitant]
     Active Substance: LIDOCAINE
     Indication: MUSCULOSKELETAL PAIN
     Dosage: PATCH

REACTIONS (25)
  - Dysstasia [Recovering/Resolving]
  - Feeling cold [Unknown]
  - Tremor [Unknown]
  - Mental disorder [Unknown]
  - Urinary tract infection [Not Recovered/Not Resolved]
  - Rib fracture [Unknown]
  - Peripheral swelling [Unknown]
  - Malaise [Recovering/Resolving]
  - Sepsis [Unknown]
  - Pain [Unknown]
  - Constipation [Unknown]
  - Gait disturbance [Unknown]
  - Body temperature increased [Recovering/Resolving]
  - Vomiting [Unknown]
  - Drug dose omission [Unknown]
  - Fall [Unknown]
  - Pruritus [Not Recovered/Not Resolved]
  - Alopecia [Recovering/Resolving]
  - Haemoglobin decreased [Unknown]
  - Burning sensation [Unknown]
  - Meningitis [Recovering/Resolving]
  - Hypoacusis [Unknown]
  - Varicose vein [Unknown]
  - Dehydration [Recovering/Resolving]
  - Diarrhoea [Unknown]

NARRATIVE: CASE EVENT DATE: 2014
